FAERS Safety Report 11857735 (Version 1)
Quarter: 2015Q4

REPORT INFORMATION
  Report Type: Spontaneous
  Country: US (occurrence: None)
  Receive Date: 20151221
  Receipt Date: 20151221
  Transmission Date: 20160305
  Serious: Yes (Disabling)
  Sender: FDA-Public Use
  Company Number: None

PATIENT
  Age: 50 Year
  Sex: Female
  Weight: 53.52 kg

DRUGS (4)
  1. AVELOX [Suspect]
     Active Substance: MOXIFLOXACIN HYDROCHLORIDE
     Indication: LUNG INFECTION
     Dosage: 1/DA 6 DA ONCE DAILY TAKEN BY MOUTH
     Route: 048
  2. CIPRO [Suspect]
     Active Substance: CIPROFLOXACIN HYDROCHLORIDE
     Indication: SINUSITIS
     Route: 048
  3. GINSENG [Concomitant]
     Active Substance: ASIAN GINSENG
  4. TRAMADOL. [Concomitant]
     Active Substance: TRAMADOL

REACTIONS (10)
  - Gait disturbance [None]
  - Social problem [None]
  - Grip strength decreased [None]
  - Cognitive disorder [None]
  - Asthenia [None]
  - Insomnia [None]
  - Visual acuity reduced [None]
  - Dyspnoea [None]
  - Gastrointestinal disorder [None]
  - Anxiety [None]

NARRATIVE: CASE EVENT DATE: 20011105
